FAERS Safety Report 7377288-0 (Version None)
Quarter: 2011Q1

REPORT INFORMATION
  Report Type: 
  Country: None (occurrence: None)
  Receive Date: 20110328
  Receipt Date: 20110325
  Transmission Date: 20110831
  Serious: Yes (Hospitalization, Other)
  Sender: FDA-Public Use
  Company Number: US-BAYER-201029927NA

PATIENT
  Sex: Female

DRUGS (1)
  1. BETASERON [Suspect]
     Indication: RELAPSING-REMITTING MULTIPLE SCLEROSIS
     Route: 058
     Dates: start: 19991011

REACTIONS (4)
  - CEREBROVASCULAR ACCIDENT [None]
  - INJECTION SITE PAIN [None]
  - THROMBOSIS [None]
  - CARDIAC SEPTAL DEFECT [None]
